FAERS Safety Report 7243741-3 (Version None)
Quarter: 2011Q1

REPORT INFORMATION
  Report Type: 
  Country: None (occurrence: None)
  Receive Date: 20110125
  Receipt Date: 20110119
  Transmission Date: 20110831
  Serious: No
  Sender: FDA-Public Use
  Company Number: US-PFIZER INC-2011013440

PATIENT
  Sex: Female
  Weight: 53.5 kg

DRUGS (4)
  1. PRISTIQ [Suspect]
     Indication: DEPRESSION
     Dosage: 50 MG, 1X/DAY
     Route: 048
     Dates: start: 20101001
  2. MONTELUKAST [Concomitant]
     Indication: ASTHMA
     Dosage: UNK
  3. LEVOXYL [Concomitant]
     Indication: THYROID DISORDER
     Dosage: UNK
  4. SYNTHROID [Concomitant]
     Indication: THYROID DISORDER
     Dosage: UNK

REACTIONS (3)
  - ABNORMAL DREAMS [None]
  - PHOTOPSIA [None]
  - ANXIETY [None]
